FAERS Safety Report 5060024-0 (Version None)
Quarter: 2006Q3

REPORT INFORMATION
  Report Type: 
  Country: None (occurrence: None)
  Receive Date: 20060719
  Receipt Date: 20060710
  Transmission Date: 20061208
  Serious: Yes (Hospitalization)
  Sender: FDA-Public Use
  Company Number: 200611760BCC

PATIENT
  Age: 48 Year
  Sex: Female
  Weight: 81.6475 kg

DRUGS (5)
  1. ALEVE [Suspect]
     Indication: ARTHRITIS
     Dosage: 220 MG, QD, ORAL
     Route: 048
     Dates: start: 20000101
  2. ALEVE [Suspect]
     Indication: DYSMENORRHOEA
     Dosage: 220 MG, QD, ORAL
     Route: 048
     Dates: start: 20000101
  3. ADVAIR DISKUS 100/50 [Concomitant]
  4. ALBUTEROL SPIROS [Concomitant]
  5. SEASONALE [Concomitant]

REACTIONS (2)
  - MYOCARDIAL INFARCTION [None]
  - ORAL INTAKE REDUCED [None]
